FAERS Safety Report 5400109-X (Version None)
Quarter: 2007Q3

REPORT INFORMATION
  Report Type: 
  Country: None (occurrence: None)
  Receive Date: 20070730
  Receipt Date: 20070726
  Transmission Date: 20080115
  Serious: Yes (Other)
  Sender: FDA-Public Use
  Company Number: US-BRISTOL-MYERS SQUIBB COMPANY-13858923

PATIENT
  Age: 79 Year
  Sex: Female

DRUGS (4)
  1. METFORMIN HCL [Suspect]
  2. LISINOPRIL [Concomitant]
  3. DIGITEK [Concomitant]
  4. ECOTRIN [Concomitant]

REACTIONS (1)
  - BLOOD PRESSURE INCREASED [None]
